FAERS Safety Report 9353136 (Version 1)
Quarter: 2013Q2

REPORT INFORMATION
  Report Type: Spontaneous
  Country: US (occurrence: None)
  Receive Date: 20130617
  Receipt Date: 20130617
  Transmission Date: 20140414
  Serious: Yes (Other)
  Sender: FDA-Public Use
  Company Number: None

PATIENT
  Age: 40 Year
  Sex: Female
  Weight: 64.41 kg

DRUGS (1)
  1. TOPIRAMATE [Suspect]
     Dosage: 100 MG 1 TABLET TWICE DAILY BY ORAL ROUTE 047
     Route: 048
     Dates: start: 20090205, end: 20090527

REACTIONS (3)
  - Convulsion [None]
  - Drug ineffective [None]
  - Product substitution issue [None]
